FAERS Safety Report 18364525 (Version 1)
Quarter: 2020Q4

REPORT INFORMATION
  Report Type: Spontaneous
  Country: US (occurrence: US)
  Receive Date: 20201008
  Receipt Date: 20201008
  Transmission Date: 20210114
  Serious: No
  Sender: FDA-Public Use
  Company Number: None

PATIENT
  Age: 55 Year
  Sex: Female
  Weight: 87.09 kg

DRUGS (1)
  1. REMDESIVIR FOR INJECTION [Suspect]
     Active Substance: REMDESIVIR
     Indication: COVID-19
     Dosage: ?          OTHER ROUTE:IVPB?
     Dates: start: 20201004, end: 20201004

REACTIONS (3)
  - Injection site warmth [None]
  - Feeling hot [None]
  - Swelling face [None]

NARRATIVE: CASE EVENT DATE: 20201004
